FAERS Safety Report 7151345-6 (Version None)
Quarter: 2010Q4

REPORT INFORMATION
  Report Type: 
  Country: None (occurrence: None)
  Receive Date: 20101210
  Receipt Date: 20101207
  Transmission Date: 20110411
  Serious: Yes (Death)
  Sender: FDA-Public Use
  Company Number: US-CELGENEUS-163-21880-10120770

PATIENT
  Age: 55 Year
  Sex: Female

DRUGS (8)
  1. REVLIMID [Suspect]
     Indication: MULTIPLE MYELOMA
     Dates: start: 20090401, end: 20090601
  2. REVLIMID [Suspect]
     Dates: start: 20091201, end: 20100501
  3. DEXAMETHASONE [Concomitant]
     Route: 065
  4. PROCRIT [Concomitant]
     Route: 065
  5. FLEXERIL [Concomitant]
     Route: 065
  6. DRONABINOL [Concomitant]
     Route: 065
  7. MORPHINE SULFATE [Concomitant]
     Route: 065
  8. ATENOLOL [Concomitant]
     Route: 065

REACTIONS (1)
  - DEATH [None]
